FAERS Safety Report 5499698-9 (Version None)
Quarter: 2007Q4

REPORT INFORMATION
  Report Type: 
  Country: None (occurrence: None)
  Receive Date: 20071026
  Receipt Date: 20071016
  Transmission Date: 20080405
  Serious: Yes (Hospitalization)
  Sender: FDA-Public Use
  Company Number: IT-ROCHE-507465

PATIENT
  Age: 66 Year
  Sex: Female

DRUGS (4)
  1. CEFTRIAXONE [Suspect]
     Indication: PLEURAL MESOTHELIOMA
     Route: 065
  2. BROMAZEPAM [Concomitant]
  3. 4'-EPIDOXORUBICIN HYDROCHLORIDE [Concomitant]
  4. INTERFERON NOS [Concomitant]

REACTIONS (1)
  - TOXIC EPIDERMAL NECROLYSIS [None]
